FAERS Safety Report 8201944-5 (Version None)
Quarter: 2012Q1

REPORT INFORMATION
  Report Type: 
  Country: None (occurrence: None)
  Receive Date: 20120312
  Receipt Date: 20120229
  Transmission Date: 20120608
  Serious: Yes (Other)
  Sender: FDA-Public Use
  Company Number: DE-PFIZER INC-DE-WYE-H12705309

PATIENT
  Age: 86 Year
  Sex: Male

DRUGS (7)
  1. AMIODARONE HCL [Suspect]
     Indication: ATRIAL FIBRILLATION
     Dosage: 200 MG, 1X/DAY
     Route: 048
     Dates: start: 20050101, end: 20091101
  2. MARCUMAR [Concomitant]
  3. TAMSULOSIN HCL [Concomitant]
  4. IBUPROFEN [Concomitant]
  5. DRONEDARONE HYDROCHLORIDE [Suspect]
     Indication: ATRIAL FIBRILLATION
     Dosage: 400 MG, UNK
     Route: 048
     Dates: start: 20100601
  6. PROSCAR [Concomitant]
  7. DIOVAN HCT [Concomitant]

REACTIONS (6)
  - HYPOAESTHESIA [None]
  - ATRIAL FIBRILLATION [None]
  - ARRHYTHMIA [None]
  - PERIPHERAL COLDNESS [None]
  - TACHYCARDIA [None]
  - PAIN IN EXTREMITY [None]
